FAERS Safety Report 8557030-8 (Version None)
Quarter: 2012Q3

REPORT INFORMATION
  Report Type: 
  Country: None (occurrence: None)
  Receive Date: 20120801
  Receipt Date: 20120724
  Transmission Date: 20120928
  Serious: Yes (Other)
  Sender: FDA-Public Use
  Company Number: US-JNJFOC-20120714696

PATIENT
  Sex: Female
  Weight: 63.5 kg

DRUGS (1)
  1. PANCREAZE [Suspect]
     Indication: PANCREATIC INSUFFICIENCY
     Dosage: 16000 UNITS LIPASE/WITH MEALS AND SNACKS
     Route: 048
     Dates: start: 19890101

REACTIONS (1)
  - OVERGROWTH BACTERIAL [None]
